FAERS Safety Report 7796299-4 (Version None)
Quarter: 2011Q4

REPORT INFORMATION
  Report Type: 
  Country: None (occurrence: None)
  Receive Date: 20111005
  Receipt Date: 20110927
  Transmission Date: 20120403
  Serious: Yes (Other)
  Sender: FDA-Public Use
  Company Number: IT-AMGEN-ITACT2011023918

PATIENT
  Age: 3 Year
  Sex: Male
  Weight: 11.5 kg

DRUGS (10)
  1. FERROUS SULFATE TAB [Concomitant]
     Dosage: 125 MG, QD
     Route: 048
  2. LEVOLEUCOVORIN CALCIUM [Concomitant]
     Dosage: 3.75 MG, UNK
  3. ERYTHROPOETIN [Concomitant]
     Dosage: UNK UNK, QWK
     Route: 058
  4. CINACALCET HYDROCHLORIDE [Suspect]
     Indication: HYPERPARATHYROIDISM SECONDARY
     Dosage: 0.25 MG/KG, QD
     Dates: start: 20101206, end: 20110315
  5. CLAVULANATE POTASSIUM [Concomitant]
     Dosage: 2.5 ML, QD
  6. OXYBUTIN [Concomitant]
     Dosage: 2.5 UNK, UNK
     Route: 048
  7. CALCITRIOL [Concomitant]
     Dosage: 0.25 MUG, QD
  8. AMOXICILLIN [Concomitant]
     Dosage: 2.5 ML, QD
     Route: 048
  9. CALCIUM CARBONATE [Concomitant]
     Dosage: 2 ML, PRN
  10. RANITIDINE [Concomitant]
     Dosage: 75 MG, QD

REACTIONS (1)
  - LIVER FUNCTION TEST ABNORMAL [None]
